FAERS Safety Report 7572442-7 (Version None)
Quarter: 2011Q2

REPORT INFORMATION
  Report Type: 
  Country: None (occurrence: None)
  Receive Date: 20110624
  Receipt Date: 20110620
  Transmission Date: 20111010
  Serious: Yes (Hospitalization)
  Sender: FDA-Public Use
  Company Number: GR-ABBOTT-11P-066-0734923-00

PATIENT
  Age: 3 Year

DRUGS (3)
  1. CLARITHROMYCIN [Suspect]
     Indication: ASTHMA
  2. INHALER BRONCHODILATORS [Concomitant]
     Indication: ASTHMA
  3. CORTISONE ACETATE [Concomitant]
     Indication: ASTHMA

REACTIONS (1)
  - GASTROENTERITIS ROTAVIRUS [None]
